FAERS Safety Report 5411128-1 (Version None)
Quarter: 2007Q3

REPORT INFORMATION
  Report Type: 
  Country: None (occurrence: None)
  Receive Date: 20070808
  Receipt Date: 20070802
  Transmission Date: 20080115
  Serious: Yes (Hospitalization)
  Sender: FDA-Public Use
  Company Number: URSO-2007-173

PATIENT
  Age: 38 Year
  Sex: Male

DRUGS (2)
  1. URSO 250 [Suspect]
     Indication: HEPATITIS ALCOHOLIC
     Dosage: 300 MG
  2. NIZATIDINE [Concomitant]

REACTIONS (2)
  - ALANINE AMINOTRANSFERASE INCREASED [None]
  - LIVER DISORDER [None]
